FAERS Safety Report 8392995-9 (Version None)
Quarter: 2012Q2

REPORT INFORMATION
  Report Type: 
  Country: None (occurrence: None)
  Receive Date: 20120529
  Receipt Date: 20120305
  Transmission Date: 20120825
  Serious: No
  Sender: FDA-Public Use
  Company Number: US-ABBOTT-12P-163-0913063-00

PATIENT
  Sex: Male
  Weight: 68.1 kg

DRUGS (5)
  1. LIPITOR [Concomitant]
     Indication: BLOOD CHOLESTEROL INCREASED
  2. ANDROGEL [Suspect]
     Indication: BLOOD TESTOSTERONE DECREASED
     Route: 061
     Dates: start: 20120303
  3. LEVOXYL [Concomitant]
     Indication: THYROID FUNCTION TEST ABNORMAL
  4. THYROID TAB [Concomitant]
     Indication: THYROID FUNCTION TEST ABNORMAL
  5. ATENOLOL [Concomitant]
     Indication: HYPERTENSION

REACTIONS (1)
  - POOR QUALITY SLEEP [None]
